FAERS Safety Report 4510928-X (Version None)
Quarter: 2004Q4

REPORT INFORMATION
  Report Type: 
  Country: None (occurrence: None)
  Receive Date: 20041025
  Receipt Date: 20040115
  Transmission Date: 20050328
  Serious: Yes (Other)
  Sender: FDA-Public Use
  Company Number: NSADSS2002042935

PATIENT
  Age: 80 Year
  Sex: Male
  Weight: 91.6266 kg

DRUGS (15)
  1. REMICADE [Suspect]
     Indication: RHEUMATOID ARTHRITIS
     Dosage: 500 MG, 1 IN 1 AS NECESSARY, INRAVENOUS DRIP
     Route: 041
     Dates: start: 20020222, end: 20020222
  2. REMICADE [Suspect]
     Indication: RHEUMATOID ARTHRITIS
     Dosage: 500 MG, 1 IN 1 AS NECESSARY, INRAVENOUS DRIP
     Route: 041
     Dates: start: 20020920, end: 20020920
  3. TYLENOL W/ CODEINE [Concomitant]
  4. ULTRACET (TRAMADOL/APAP) [Concomitant]
  5. ARAVA [Concomitant]
  6. PREDNISONE [Concomitant]
  7. CARDURA [Concomitant]
  8. MVI (MULTIVITAMINS) [Concomitant]
  9. CALCIUM (CALCIUM) [Concomitant]
  10. ACTONEL [Concomitant]
  11. PROSCAR [Concomitant]
  12. PEPCID [Concomitant]
  13. ORPHENADRINE HYDROCHLORIDE (ORPHENADRINE HYDROCHLORIDE) [Concomitant]
  14. TYLENOL [Concomitant]
  15. CLARITIN [Concomitant]

REACTIONS (1)
  - LUPUS-LIKE SYNDROME [None]
